FAERS Safety Report 8110979 (Version 4)
Quarter: 2013Q3

REPORT INFORMATION
  Report Type: Spontaneous
  Country: US (occurrence: US)
  Receive Date: 20110829
  Receipt Date: 20130716
  Transmission Date: 20140515
  Serious: Yes (Other)
  Sender: FDA-Public Use
  Company Number: US-ROCHE-798775

PATIENT
  Age: 15 Year
  Sex: Male
  Weight: 70.37 kg

DRUGS (2)
  1. ACCUTANE [Suspect]
     Indication: ACNE
     Dosage: 20 MG MORNING AND 40 MG EVENING
     Route: 065
     Dates: start: 19981213, end: 19990514
  2. TYLENOL [Concomitant]
     Route: 065
     Dates: start: 1994, end: 1998

REACTIONS (10)
  - Colitis ulcerative [Unknown]
  - Inflammatory bowel disease [Unknown]
  - Colon injury [Unknown]
  - Depression [Not Recovered/Not Resolved]
  - Injury [Unknown]
  - Crohn^s disease [Unknown]
  - Irritable bowel syndrome [Unknown]
  - Musculoskeletal discomfort [Unknown]
  - Dry skin [Unknown]
  - Visual acuity reduced [Unknown]
